FAERS Safety Report 14850908 (Version 2)
Quarter: 2018Q2

REPORT INFORMATION
  Report Type: Spontaneous
  Country: DE (occurrence: DE)
  Receive Date: 20180506
  Receipt Date: 20180506
  Transmission Date: 20180711
  Serious: Yes (Other)
  Sender: FDA-Public Use
  Company Number: PHHY2017DE202942

PATIENT
  Sex: Female
  Weight: 54 kg

DRUGS (31)
  1. CARFILZOMIB [Suspect]
     Active Substance: CARFILZOMIB
     Indication: PLASMA CELL MYELOMA
     Dosage: 40 MG, QD
     Route: 041
     Dates: start: 20170130, end: 20170131
  2. CARFILZOMIB [Suspect]
     Active Substance: CARFILZOMIB
     Dosage: 54 MG, QD
     Route: 041
     Dates: start: 20170327, end: 20170428
  3. CARFILZOMIB [Suspect]
     Active Substance: CARFILZOMIB
     Dosage: 54 MG, QD
     Route: 041
     Dates: start: 20170612, end: 20170613
  4. CARFILZOMIB [Suspect]
     Active Substance: CARFILZOMIB
     Dosage: 54 MG, QD
     Route: 041
     Dates: start: 20170403, end: 20170404
  5. CARFILZOMIB [Suspect]
     Active Substance: CARFILZOMIB
     Dosage: 54 MG, QD
     Route: 041
     Dates: start: 20170703
  6. CARFILZOMIB [Suspect]
     Active Substance: CARFILZOMIB
     Dosage: 54 MG, QD
     Route: 041
     Dates: start: 20170710, end: 20170711
  7. CARFILZOMIB [Suspect]
     Active Substance: CARFILZOMIB
     Dosage: 54 MG, QD
     Route: 041
     Dates: start: 20170731, end: 20170801
  8. CARFILZOMIB [Suspect]
     Active Substance: CARFILZOMIB
     Dosage: 54 MG, QD
     Route: 041
     Dates: start: 20170502, end: 20170503
  9. CARFILZOMIB [Suspect]
     Active Substance: CARFILZOMIB
     Dosage: 54 MG, QD
     Route: 041
     Dates: start: 20170424, end: 20170425
  10. CARFILZOMIB [Suspect]
     Active Substance: CARFILZOMIB
     Dosage: 54 MG, QD
     Route: 041
     Dates: start: 20170529, end: 20170530
  11. ACICLOVIR [Concomitant]
     Active Substance: ACYCLOVIR
     Indication: PROPHYLAXIS
     Dosage: 1200 MG, QD
     Route: 065
     Dates: start: 20170131
  12. CANDESARTAN. [Concomitant]
     Active Substance: CANDESARTAN
     Indication: PROPHYLAXIS
     Dosage: 5 MG, QD
     Route: 065
     Dates: start: 20170530
  13. ASPIRIN. [Concomitant]
     Active Substance: ASPIRIN
     Indication: PROPHYLAXIS
     Dosage: 100 MG, QD
     Route: 065
     Dates: start: 20170131
  14. DEXAMETHASONE. [Suspect]
     Active Substance: DEXAMETHASONE
     Indication: PRODUCT USED FOR UNKNOWN INDICATION
     Dosage: 40 MG, UNK
     Route: 065
  15. CARFILZOMIB [Suspect]
     Active Substance: CARFILZOMIB
     Dosage: 54 MG, QD
     Route: 041
     Dates: start: 20170306, end: 20170307
  16. COTRIM FORTE [Concomitant]
     Active Substance: SULFAMETHOXAZOLE\TRIMETHOPRIM
     Indication: PROPHYLAXIS
     Dosage: 1920 MG, QW
     Route: 005
     Dates: start: 20170131
  17. CARFILZOMIB [Suspect]
     Active Substance: CARFILZOMIB
     Dosage: 54 MG, QD
     Route: 041
     Dates: start: 20170227, end: 20170228
  18. CARFILZOMIB [Suspect]
     Active Substance: CARFILZOMIB
     Dosage: 54 MG, QD
     Route: 041
     Dates: start: 20170410, end: 20170811
  19. CARFILZOMIB [Suspect]
     Active Substance: CARFILZOMIB
     Dosage: 54 MG, QD
     Route: 041
     Dates: start: 20170807, end: 20170808
  20. CARFILZOMIB [Suspect]
     Active Substance: CARFILZOMIB
     Dosage: 54 MG, QD
     Route: 041
     Dates: start: 20170814, end: 20170815
  21. REVLIMID [Suspect]
     Active Substance: LENALIDOMIDE
     Indication: PLASMA CELL MYELOMA
     Dosage: 25 MG, UNK
     Route: 048
  22. REVLIMID [Suspect]
     Active Substance: LENALIDOMIDE
     Dosage: 20 MG, UNK
     Route: 048
  23. BONDRONAT [Concomitant]
     Active Substance: IBANDRONIC ACID
     Indication: PROPHYLAXIS
     Dosage: 6 MG, QD
     Route: 065
  24. OMEPRAZOL [Concomitant]
     Active Substance: OMEPRAZOLE
     Indication: PROPHYLAXIS
     Dosage: 40 MG, QD
     Route: 065
     Dates: start: 20170131
  25. CARFILZOMIB [Suspect]
     Active Substance: CARFILZOMIB
     Dosage: 54 MG, QD
     Route: 041
     Dates: start: 20170206, end: 20170207
  26. CARFILZOMIB [Suspect]
     Active Substance: CARFILZOMIB
     Dosage: 54 MG, QD
     Route: 041
     Dates: start: 20170213, end: 20170214
  27. CARFILZOMIB [Suspect]
     Active Substance: CARFILZOMIB
     Dosage: 54 MG, QD
     Route: 041
     Dates: start: 20170606
  28. CARFILZOMIB [Suspect]
     Active Substance: CARFILZOMIB
     Dosage: 54 MG, QD
     Route: 041
     Dates: start: 20170626, end: 20170627
  29. CARFILZOMIB [Suspect]
     Active Substance: CARFILZOMIB
     Dosage: 54 MG, QD
     Route: 041
     Dates: start: 20170828, end: 20170905
  30. CARFILZOMIB [Suspect]
     Active Substance: CARFILZOMIB
     Dosage: 54 MG, QD
     Route: 041
     Dates: start: 20170912, end: 20170925
  31. CARFILZOMIB [Suspect]
     Active Substance: CARFILZOMIB
     Dosage: 54 MG, QD
     Route: 041
     Dates: start: 20170313, end: 20170314

REACTIONS (1)
  - Thrombocytopenia [Recovered/Resolved]

NARRATIVE: CASE EVENT DATE: 20170911
